APPROVED DRUG PRODUCT: SULFAMETHOPRIM
Active Ingredient: SULFAMETHOXAZOLE; TRIMETHOPRIM
Strength: 400MG;80MG
Dosage Form/Route: TABLET;ORAL
Application: A070022 | Product #001
Applicant: NOVEL LABORATORIES INC
Approved: Feb 15, 1985 | RLD: No | RS: No | Type: DISCN